FAERS Safety Report 4749148-2 (Version None)
Quarter: 2005Q3

REPORT INFORMATION
  Report Type: 
  Country: None (occurrence: None)
  Receive Date: 20050817
  Receipt Date: 20050802
  Transmission Date: 20060218
  Serious: Yes (Other)
  Sender: FDA-Public Use
  Company Number: 2005FR-00216

PATIENT
  Age: 56 Year
  Sex: Female

DRUGS (7)
  1. FLUOXETINE [Suspect]
  2. CO-DYDRAMOL (DIHYDROCODEINE  + PARACETAMOL) [Suspect]
  3. HUMIRA [Concomitant]
  4. METHOTREXATE [Concomitant]
  5. VIOXX [Concomitant]
  6. PREMARIN [Concomitant]
  7. AUGMENTIN '125' [Concomitant]

REACTIONS (1)
  - RETINAL HAEMORRHAGE [None]
